FAERS Safety Report 21808647 (Version 2)
Quarter: 2023Q1

REPORT INFORMATION
  Report Type: Spontaneous
  Country: BR (occurrence: BR)
  Receive Date: 20230103
  Receipt Date: 20230119
  Transmission Date: 20230418
  Serious: Yes (Other)
  Sender: FDA-Public Use
  Company Number: BR-ORGANON-O2212BRA002203

PATIENT
  Age: 29 Year
  Sex: Female
  Weight: 51.9 kg

DRUGS (1)
  1. ETONOGESTREL [Suspect]
     Active Substance: ETONOGESTREL
     Indication: Contraception
     Dosage: 1 IMPLANT
     Route: 059
     Dates: start: 20040312, end: 20050315

REACTIONS (2)
  - Pregnancy with implant contraceptive [Recovered/Resolved with Sequelae]
  - Unintended pregnancy [Recovered/Resolved with Sequelae]

NARRATIVE: CASE EVENT DATE: 20050315
